FAERS Safety Report 20621230 (Version 1)
Quarter: 2022Q1

REPORT INFORMATION
  Report Type: Spontaneous
  Country: CA (occurrence: CA)
  Receive Date: 20220322
  Receipt Date: 20220322
  Transmission Date: 20220423
  Serious: Yes (Other)
  Sender: FDA-Public Use
  Company Number: CA-GLAXOSMITHKLINE-CA2022AMR050009

PATIENT
  Age: 67 Year
  Sex: Male

DRUGS (2)
  1. ACITRETIN [Suspect]
     Active Substance: ACITRETIN
     Indication: Palmoplantar pustulosis
     Dosage: UNK
     Route: 048
  2. PREDNISONE [Concomitant]
     Active Substance: PREDNISONE
     Indication: Product used for unknown indication
     Dosage: UNK

REACTIONS (5)
  - Lymphoma [Not Recovered/Not Resolved]
  - Tuberculosis [Unknown]
  - Pulmonary mass [Unknown]
  - Hepatic lesion [Unknown]
  - Pain [Not Recovered/Not Resolved]
